FAERS Safety Report 12144467 (Version 3)
Quarter: 2017Q1

REPORT INFORMATION
  Report Type: Spontaneous
  Country: US (occurrence: US)
  Receive Date: 20160304
  Receipt Date: 20170104
  Transmission Date: 20170428
  Serious: Yes (Other)
  Sender: FDA-Public Use
  Company Number: US-ASTRAZENECA-2016SE20747

PATIENT
  Age: 59 Year
  Sex: Female
  Weight: 72.6 kg

DRUGS (36)
  1. ZOLOFT [Suspect]
     Active Substance: SERTRALINE HYDROCHLORIDE
     Route: 065
  2. LIPITOR [Suspect]
     Active Substance: ATORVASTATIN CALCIUM
     Route: 065
  3. TYLENOL [Concomitant]
     Active Substance: ACETAMINOPHEN
     Dosage: 500.0MG UNKNOWN
  4. PERCOCET [Concomitant]
     Active Substance: ACETAMINOPHEN\OXYCODONE HYDROCHLORIDE
     Indication: PAIN
     Dosage: 5/325, TAKES A QUARTER TO HALF
  5. PERCOCET [Concomitant]
     Active Substance: ACETAMINOPHEN\OXYCODONE HYDROCHLORIDE
     Indication: SLEEP DISORDER
     Dosage: 5/325, TAKES A QUARTER TO HALF
  6. VITAMIN B6 [Concomitant]
     Active Substance: PYRIDOXINE HYDROCHLORIDE
     Dosage: 100.0MG UNKNOWN
  7. PRILOSEC [Suspect]
     Active Substance: OMEPRAZOLE MAGNESIUM
     Route: 048
  8. DIFLUCAN [Suspect]
     Active Substance: FLUCONAZOLE
     Route: 065
  9. ECOTRIN [Concomitant]
     Active Substance: ASPIRIN
     Dosage: 81.0MG UNKNOWN
  10. SYNTHROID [Concomitant]
     Active Substance: LEVOTHYROXINE SODIUM
     Indication: THYROID DISORDER
     Dates: start: 2000
  11. TERAZOL [Concomitant]
     Active Substance: TERCONAZOLE
     Dosage: 80.0MG UNKNOWN
     Route: 067
  12. VITAMIN D2 [Concomitant]
     Active Substance: ERGOCALCIFEROL
     Route: 048
  13. PEPCID [Concomitant]
     Active Substance: FAMOTIDINE
     Dosage: 20.0MG UNKNOWN
  14. ZOFRAN [Concomitant]
     Active Substance: ONDANSETRON HYDROCHLORIDE
     Indication: GASTROINTESTINAL DISORDER
     Dates: start: 2000
  15. CETAPHIL [Concomitant]
     Active Substance: AVOBENZONE\OCTOCRYLENE\TRICLOSAN
     Dosage: AS REQUIRED
  16. COLACE [Concomitant]
     Active Substance: DOCUSATE SODIUM
     Dosage: 50.0UG UNKNOWN
  17. ASPIRIN. [Concomitant]
     Active Substance: ASPIRIN
     Dosage: 81.0MG AS REQUIRED
  18. KAOPECTATE REGULAR STRENGTH CHERRY FLAVOR [Concomitant]
     Active Substance: BISMUTH SUBSALICYLATE
     Dosage: AS REQUIRED
  19. VITAMIN K [Concomitant]
     Active Substance: PHYTONADIONE
     Dosage: 100.0UG AS REQUIRED
  20. CORTEF [Suspect]
     Active Substance: HYDROCORTISONE
     Indication: ADDISON^S DISEASE
     Dosage: 10 TABS DAILY
     Route: 048
  21. ESTRING [Suspect]
     Active Substance: ESTRADIOL
     Route: 065
  22. ELAVIL [Suspect]
     Active Substance: AMITRIPTYLINE HYDROCHLORIDE
     Route: 048
  23. VITAMIN E [Concomitant]
     Active Substance: .ALPHA.-TOCOPHEROL
     Dosage: 400 UNIT
  24. VITAMIN C [Concomitant]
     Active Substance: ASCORBIC ACID
     Dosage: 250.0MG AS REQUIRED
     Route: 030
  25. TAMOXIFEN [Suspect]
     Active Substance: TAMOXIFEN
     Indication: BREAST CANCER
     Route: 048
     Dates: start: 2001
  26. FASLODEX [Suspect]
     Active Substance: FULVESTRANT
     Indication: BREAST CANCER
     Route: 030
     Dates: start: 201406
  27. CLEOCIN [Suspect]
     Active Substance: CLINDAMYCIN PHOSPHATE
     Route: 065
  28. ZYRTEC [Suspect]
     Active Substance: CETIRIZINE HYDROCHLORIDE
     Route: 065
  29. CYTOMEL [Suspect]
     Active Substance: LIOTHYRONINE SODIUM
     Route: 065
  30. SALINEX [Concomitant]
     Dosage: AS REQUIRED
  31. CORTEF [Suspect]
     Active Substance: HYDROCORTISONE
     Indication: ADDISON^S DISEASE
     Dosage: AT 7 AM 5 MG TABLET EVERY HOUR UNTIL 3 PM, 5 MG AT 8 PM
     Route: 048
     Dates: start: 201601
  32. VITAMIN B12 [Concomitant]
     Active Substance: CYANOCOBALAMIN
     Dosage: 1000.0UG UNKNOWN
  33. IMODIUM [Concomitant]
     Active Substance: LOPERAMIDE HYDROCHLORIDE
     Dosage: 2.0MG UNKNOWN
  34. LEVOFLOXACIN. [Concomitant]
     Active Substance: LEVOFLOXACIN
     Dosage: 250 MG TAB A 1/4 TO 1/2 A TAB ONCE A DAY
  35. ACIDOPHLLUS [Concomitant]
  36. FASLODEX [Suspect]
     Active Substance: FULVESTRANT
     Indication: BREAST CANCER
     Route: 030
     Dates: start: 201406

REACTIONS (50)
  - Tarsal tunnel syndrome [Unknown]
  - Haemorrhoids [Unknown]
  - Memory impairment [Unknown]
  - Seroma [Not Recovered/Not Resolved]
  - Insomnia [Unknown]
  - Eructation [Not Recovered/Not Resolved]
  - Night sweats [Unknown]
  - Vertigo [Not Recovered/Not Resolved]
  - Diverticulitis [Unknown]
  - Pain [Unknown]
  - Balance disorder [Unknown]
  - Hypercholesterolaemia [Unknown]
  - Papilloma viral infection [Unknown]
  - Dyspnoea [Unknown]
  - Nasopharyngitis [Not Recovered/Not Resolved]
  - Hyperhidrosis [Unknown]
  - Addison^s disease [Unknown]
  - Learning disorder [Unknown]
  - Dry throat [Unknown]
  - Fall [Unknown]
  - Metastases to lung [Unknown]
  - Osteoporosis [Not Recovered/Not Resolved]
  - Tinnitus [Not Recovered/Not Resolved]
  - Gastrointestinal disorder [Unknown]
  - Dysphagia [Not Recovered/Not Resolved]
  - Breast cancer [Unknown]
  - Metastases to liver [Not Recovered/Not Resolved]
  - Dyslipidaemia [Unknown]
  - Irritable bowel syndrome [Unknown]
  - Inflammatory bowel disease [Unknown]
  - Flatulence [Unknown]
  - Hypothyroidism [Unknown]
  - Depression [Unknown]
  - Lethargy [Unknown]
  - Migraine [Unknown]
  - Facial nerve disorder [Unknown]
  - Dysstasia [Unknown]
  - Weight decreased [Unknown]
  - Cough [Unknown]
  - Goitre [Unknown]
  - Post-traumatic stress disorder [Unknown]
  - Muscle spasms [Unknown]
  - Jaw disorder [Unknown]
  - Nausea [Unknown]
  - Arthralgia [Unknown]
  - Headache [Unknown]
  - Neuropathy peripheral [Unknown]
  - Amnesia [Unknown]
  - Patellofemoral pain syndrome [Unknown]
  - Arthritis [Unknown]

NARRATIVE: CASE EVENT DATE: 2000
